FAERS Safety Report 14046088 (Version 2)
Quarter: 2018Q1

REPORT INFORMATION
  Report Type: Report from Study
  Country: BR (occurrence: BR)
  Receive Date: 20171005
  Receipt Date: 20180302
  Transmission Date: 20180508
  Serious: Yes (Other)
  Sender: FDA-Public Use
  Company Number: BR-JNJFOC-20171002254

PATIENT
  Age: 69 Year
  Sex: Female
  Weight: 47 kg

DRUGS (14)
  1. PENTOXIFYLLINE. [Concomitant]
     Active Substance: PENTOXIFYLLINE
     Route: 065
  2. SIMPONI [Suspect]
     Active Substance: GOLIMUMAB
     Indication: RHEUMATOID ARTHRITIS
     Route: 058
     Dates: start: 20140211
  3. TRAYENTA [Concomitant]
     Active Substance: LINAGLIPTIN
     Route: 065
  4. OSTEONUTRI [Concomitant]
     Route: 065
  5. PREBICTAL [Concomitant]
     Active Substance: PREGABALIN
     Route: 065
  6. CIPROFIBRATE [Concomitant]
     Active Substance: CIPROFIBRATE
     Route: 065
  7. VITAMINE D [Concomitant]
     Route: 065
  8. SIMVASTATIN. [Concomitant]
     Active Substance: SIMVASTATIN
     Route: 065
  9. LEFLUNOMIDE. [Concomitant]
     Active Substance: LEFLUNOMIDE
     Route: 065
  10. PROCAINE [Concomitant]
     Active Substance: PROCAINE
     Route: 065
  11. VASOGARD [Concomitant]
     Active Substance: CILOSTAZOL
     Route: 065
  12. ALENDRONATE SODIUM. [Concomitant]
     Active Substance: ALENDRONATE SODIUM
     Route: 065
  13. MESALAZINE [Concomitant]
     Active Substance: MESALAMINE
     Route: 065
  14. BAMIFIX [Concomitant]
     Active Substance: BAMIFYLLINE HYDROCHLORIDE
     Route: 065

REACTIONS (2)
  - Osteomyelitis [Unknown]
  - Rheumatoid arthritis [Not Recovered/Not Resolved]

NARRATIVE: CASE EVENT DATE: 201701
